FAERS Safety Report 20804947 (Version 8)
Quarter: 2022Q3

REPORT INFORMATION
  Report Type: Report from Study
  Country: CN (occurrence: CN)
  Receive Date: 20220509
  Receipt Date: 20220915
  Transmission Date: 20221027
  Serious: Yes (Life-Threatening)
  Sender: FDA-Public Use
  Company Number: CN-PFIZER INC-202200653702

PATIENT
  Age: 79 Year
  Sex: Female
  Weight: 55 kg

DRUGS (90)
  1. MEROPENEM [Suspect]
     Active Substance: MEROPENEM
     Indication: Pneumonia klebsiella
     Dosage: 1 G, 4X/DAY (Q6H)
     Route: 041
     Dates: start: 20220427, end: 20220503
  2. TIGECYCLINE [Suspect]
     Active Substance: TIGECYCLINE
     Indication: Pneumonia klebsiella
     Dosage: 100 MG, 2X/DAY (Q12H)
     Route: 041
     Dates: start: 20220426, end: 20220427
  3. TIGECYCLINE [Suspect]
     Active Substance: TIGECYCLINE
     Dosage: 100 MG, 2X/DAY (Q12H)
     Route: 041
     Dates: start: 20220427, end: 20220503
  4. AMBROXOL HYDROCHLORIDE [Concomitant]
     Active Substance: AMBROXOL HYDROCHLORIDE
     Indication: Cough
     Dosage: 30 MG, 2X/DAY
     Route: 041
     Dates: start: 20220420, end: 20220422
  5. AMBROXOL HYDROCHLORIDE [Concomitant]
     Active Substance: AMBROXOL HYDROCHLORIDE
     Indication: Productive cough
     Dosage: 90 MG, 2X/DAY (PUMPING)
     Route: 041
     Dates: start: 20220421, end: 20220423
  6. AMBROXOL HYDROCHLORIDE [Concomitant]
     Active Substance: AMBROXOL HYDROCHLORIDE
     Indication: Productive cough
     Dosage: 30 MG, 2X/DAY
     Route: 041
     Dates: start: 20220424, end: 20220427
  7. AMBROXOL HYDROCHLORIDE [Concomitant]
     Active Substance: AMBROXOL HYDROCHLORIDE
     Dosage: 30 MG, 2X/DAY
     Route: 041
     Dates: start: 20220427, end: 20220503
  8. ESOMEPRAZOLE SODIUM [Concomitant]
     Active Substance: ESOMEPRAZOLE SODIUM
     Indication: Prophylaxis
     Dosage: 40 MG, 2X/DAY
     Route: 041
     Dates: start: 20220420, end: 20220422
  9. ESOMEPRAZOLE SODIUM [Concomitant]
     Active Substance: ESOMEPRAZOLE SODIUM
     Dosage: 40 MG, 2X/DAY
     Route: 041
     Dates: start: 20220421, end: 20220423
  10. CEFOPERAZONE SODIUM\SULBACTAM SODIUM [Concomitant]
     Active Substance: CEFOPERAZONE SODIUM\SULBACTAM SODIUM
     Indication: Prophylaxis
     Dosage: 1.5 G, 3X/DAY (Q8H)
     Route: 041
     Dates: start: 20220420, end: 20220422
  11. CEFOPERAZONE SODIUM\SULBACTAM SODIUM [Concomitant]
     Active Substance: CEFOPERAZONE SODIUM\SULBACTAM SODIUM
     Indication: Pneumonia klebsiella
     Dosage: 1.5 G (SURGERY IN) ST
     Dates: start: 20220421, end: 20220421
  12. CEFOPERAZONE SODIUM\SULBACTAM SODIUM [Concomitant]
     Active Substance: CEFOPERAZONE SODIUM\SULBACTAM SODIUM
     Dosage: 3 G, 2X/DAY (Q12H)
     Route: 041
     Dates: start: 20220421, end: 20220423
  13. CEFOPERAZONE SODIUM\SULBACTAM SODIUM [Concomitant]
     Active Substance: CEFOPERAZONE SODIUM\SULBACTAM SODIUM
     Dosage: 3 G ST
     Route: 041
     Dates: start: 20220423, end: 20220423
  14. CEFOPERAZONE SODIUM\SULBACTAM SODIUM [Concomitant]
     Active Substance: CEFOPERAZONE SODIUM\SULBACTAM SODIUM
     Dosage: 3 G, 3X/DAY (Q8H)
     Route: 041
     Dates: start: 20220424, end: 20220427
  15. CALCIUM GLUCONATE [Concomitant]
     Active Substance: CALCIUM GLUCONATE
     Indication: Mineral supplementation
     Dosage: 10 ML, 1X/DAY
     Route: 041
     Dates: start: 20220421, end: 20220423
  16. CALCIUM GLUCONATE [Concomitant]
     Active Substance: CALCIUM GLUCONATE
     Dosage: 30 ML ST
     Route: 042
     Dates: start: 20220423, end: 20220424
  17. CALCIUM GLUCONATE [Concomitant]
     Active Substance: CALCIUM GLUCONATE
     Dosage: 20 ML ST, PUSH INTRAVENOUS INJECTION
     Route: 042
     Dates: start: 20220428, end: 20220428
  18. CALCIUM GLUCONATE [Concomitant]
     Active Substance: CALCIUM GLUCONATE
     Dosage: 40 ML ST (PUMPING)
     Dates: start: 20220502, end: 20220502
  19. DEXAMETHASONE SODIUM PHOSPHATE [Concomitant]
     Active Substance: DEXAMETHASONE SODIUM PHOSPHATE
     Indication: Inflammation
     Dosage: 5 MG, 1X/DAY
     Route: 041
     Dates: start: 20220421, end: 20220423
  20. ALBUMIN HUMAN [Concomitant]
     Active Substance: ALBUMIN HUMAN
     Indication: Supplementation therapy
     Dosage: 10 G, 1X/DAY
     Route: 041
     Dates: start: 20220421, end: 20220423
  21. ALBUMIN HUMAN [Concomitant]
     Active Substance: ALBUMIN HUMAN
     Dosage: 90 G ST
     Route: 041
     Dates: start: 20220501, end: 20220501
  22. NITROGLYCERIN [Concomitant]
     Active Substance: NITROGLYCERIN
     Indication: Blood pressure measurement
     Dosage: 20 MG, 1X/DAY (PUMPING)
     Dates: start: 20220421, end: 20220423
  23. NITROGLYCERIN [Concomitant]
     Active Substance: NITROGLYCERIN
     Indication: Hypotension
     Dosage: 50 MG ST (PUMPING)
     Dates: start: 20220425, end: 20220426
  24. DOPAMINE HYDROCHLORIDE [Concomitant]
     Active Substance: DOPAMINE HYDROCHLORIDE
     Indication: Cardiac disorder
     Dosage: 180 MG, 1X/DAY (PUMPING)
     Dates: start: 20220421, end: 20220423
  25. DOPAMINE HYDROCHLORIDE [Concomitant]
     Active Substance: DOPAMINE HYDROCHLORIDE
     Dosage: 180 MG ST (PUMPING)
     Dates: start: 20220423, end: 20220424
  26. MOXIFLOXACIN HYDROCHLORIDE [Concomitant]
     Active Substance: MOXIFLOXACIN HYDROCHLORIDE
     Indication: Prophylaxis
     Dosage: 0.4 G, 1X/DAY
     Route: 041
     Dates: start: 20220421, end: 20220423
  27. COMPOUND AMINO ACIDS INJECTION (18AA-IX) [Concomitant]
     Indication: Supplementation therapy
     Dosage: 400 ML, DAILY
     Route: 041
     Dates: start: 20220423, end: 20220423
  28. COMPOUND AMINO ACIDS INJECTION (18AA-IX) [Concomitant]
     Dosage: 200 ML, 2X/DAY
     Dates: start: 20220424, end: 20220427
  29. ENTERAL NUTRITIONAL SUSPENSION (SP) [Concomitant]
     Indication: Supplementation therapy
     Dosage: 500 ML, 1X/DAY (ENTERAL NUTRITION)
     Dates: start: 20220424, end: 20220425
  30. ENTERAL NUTRITIONAL SUSPENSION (SP) [Concomitant]
     Dosage: 1000 ML, 1X/DAY (ENTERAL NUTRITION)
     Dates: start: 20220425, end: 20220501
  31. POTASSIUM CHLORIDE [Concomitant]
     Active Substance: POTASSIUM CHLORIDE
     Indication: Supplementation therapy
     Dosage: 20 ML ST (PUMPING)
     Dates: start: 20220422, end: 20220422
  32. POTASSIUM CHLORIDE [Concomitant]
     Active Substance: POTASSIUM CHLORIDE
     Indication: Mineral supplementation
     Dosage: 20 ML ST (PUMPING)
     Dates: start: 20220423, end: 20220423
  33. POTASSIUM CHLORIDE [Concomitant]
     Active Substance: POTASSIUM CHLORIDE
     Indication: Fluid replacement
     Dosage: 30 ML ST (PUMPING)
     Dates: start: 20220423, end: 20220424
  34. POTASSIUM CHLORIDE [Concomitant]
     Active Substance: POTASSIUM CHLORIDE
     Dosage: 5 ML, 2X/DAY
     Route: 041
     Dates: start: 20220424, end: 20220427
  35. POTASSIUM CHLORIDE [Concomitant]
     Active Substance: POTASSIUM CHLORIDE
     Dosage: 30 ML ST (PUMPING)
     Route: 041
     Dates: start: 20220428, end: 20220428
  36. POTASSIUM CHLORIDE [Concomitant]
     Active Substance: POTASSIUM CHLORIDE
     Dosage: 30 ML ST (PUMPING)
     Dates: start: 20220430, end: 20220430
  37. HEPARIN SODIUM [Concomitant]
     Active Substance: HEPARIN SODIUM
     Indication: Anticoagulant therapy
     Dosage: 1.25 WAN U ST (FLUSH)
     Dates: start: 20220501, end: 20220501
  38. LIDOCAINE HYDROCHLORIDE [Concomitant]
     Active Substance: LIDOCAINE HYDROCHLORIDE
     Indication: Local anaesthesia
     Dosage: 2.5 ML ST
     Route: 042
     Dates: start: 20220425, end: 20220425
  39. LIDOCAINE HYDROCHLORIDE [Concomitant]
     Active Substance: LIDOCAINE HYDROCHLORIDE
     Indication: Arrhythmia
     Dosage: 5 ML ST, HYPODERMIC INJECTION
     Route: 058
     Dates: start: 20220427, end: 20220427
  40. LIDOCAINE HYDROCHLORIDE [Concomitant]
     Active Substance: LIDOCAINE HYDROCHLORIDE
     Dosage: 1 BRANCH, ST
     Route: 058
     Dates: start: 20220428, end: 20220428
  41. LYSINE ACETYLSALICYLATE [Concomitant]
     Active Substance: ASPIRIN DL-LYSINE
     Indication: Pyrexia
     Dosage: 0.9 G ST
     Route: 042
     Dates: start: 20220426, end: 20220426
  42. LYSINE ACETYLSALICYLATE [Concomitant]
     Active Substance: ASPIRIN DL-LYSINE
     Dosage: 0.9 G ST (PUSH)
     Route: 042
     Dates: start: 20220501, end: 20220501
  43. GLYCERIN [Concomitant]
     Active Substance: GLYCERIN
     Indication: Laxative supportive care
     Dosage: 4 BRANCH ST (ENEMA)
     Dates: start: 20220502, end: 20220502
  44. REMIFENTANIL HYDROCHLORIDE [Concomitant]
     Active Substance: REMIFENTANIL HYDROCHLORIDE
     Indication: Analgesic therapy
     Dosage: 8 MG ST (PUMPING)
     Dates: start: 20220501, end: 20220502
  45. SUCCINYLATED GELATIN [Concomitant]
     Active Substance: SUCCINYLATED GELATIN
     Indication: Fluid replacement
     Dosage: 1000 ML ST
     Route: 041
     Dates: start: 20220501, end: 20220501
  46. MIDAZOLAM [Concomitant]
     Active Substance: MIDAZOLAM
     Indication: Feeling of relaxation
     Dosage: 100 MG ST (PUMPING)
     Dates: start: 20220423, end: 20220424
  47. MIDAZOLAM [Concomitant]
     Active Substance: MIDAZOLAM
     Dosage: 100 MG ST (PUMPING)
     Dates: start: 20220501, end: 20220502
  48. VECURONIUM BROMIDE [Concomitant]
     Active Substance: VECURONIUM BROMIDE
     Indication: Relaxation therapy
     Dosage: 4 MG ST
     Route: 042
     Dates: start: 20220501, end: 20220501
  49. FUROSEMIDE [Concomitant]
     Active Substance: FUROSEMIDE
     Indication: Polyuria
     Dosage: 100 MG ST (PUMPING)
     Route: 042
     Dates: start: 20220422, end: 20220422
  50. FUROSEMIDE [Concomitant]
     Active Substance: FUROSEMIDE
     Dosage: 500 MG ST (PUMPING)
     Route: 042
     Dates: start: 20220422, end: 20220422
  51. FUROSEMIDE [Concomitant]
     Active Substance: FUROSEMIDE
     Dosage: 20 MG ST (PUMPING)
     Route: 042
     Dates: start: 20220425, end: 20220425
  52. FUROSEMIDE [Concomitant]
     Active Substance: FUROSEMIDE
     Dosage: 60 MG, PRN (PUMPING)
     Route: 042
     Dates: start: 20220427, end: 20220430
  53. FUROSEMIDE [Concomitant]
     Active Substance: FUROSEMIDE
     Dosage: 20 MG ST
     Route: 042
     Dates: start: 20220501, end: 20220501
  54. AMIODARONE HYDROCHLORIDE [Concomitant]
     Active Substance: AMIODARONE HYDROCHLORIDE
     Indication: Heart rate
     Dosage: 0.15 G ST (PUMPING)
     Route: 042
     Dates: start: 20220424, end: 20220424
  55. AMIODARONE HYDROCHLORIDE [Concomitant]
     Active Substance: AMIODARONE HYDROCHLORIDE
     Indication: Arrhythmia
     Dosage: 0.3 G ST (PUMPING)
     Route: 042
     Dates: start: 20220424, end: 20220425
  56. AMIODARONE HYDROCHLORIDE [Concomitant]
     Active Substance: AMIODARONE HYDROCHLORIDE
     Dosage: 0.3 G ST (PUMPING)
     Route: 042
     Dates: start: 20220425, end: 20220425
  57. AMIODARONE HYDROCHLORIDE [Concomitant]
     Active Substance: AMIODARONE HYDROCHLORIDE
     Dosage: 0.15 G ST
     Route: 042
     Dates: start: 20220501, end: 20220501
  58. AMIODARONE HYDROCHLORIDE [Concomitant]
     Active Substance: AMIODARONE HYDROCHLORIDE
     Dosage: 0.45 G ST (PUMPING) (PUSH)
     Route: 042
     Dates: start: 20220501, end: 20220501
  59. DESLANOSIDE [Concomitant]
     Active Substance: DESLANOSIDE
     Indication: Cardiac disorder
     Dosage: 0.4 MG ST (PUSH)
     Route: 042
     Dates: start: 20220501, end: 20220501
  60. DIGOXIN [Concomitant]
     Active Substance: DIGOXIN
     Indication: Cardiac disorder
     Dosage: 0.5 MG ST
     Route: 042
     Dates: start: 20220423, end: 20220423
  61. DIGOXIN [Concomitant]
     Active Substance: DIGOXIN
     Dosage: 0.5 MG ST
     Route: 042
     Dates: start: 20220501, end: 20220501
  62. DOBUTAMINE HYDROCHLORIDE [Concomitant]
     Active Substance: DOBUTAMINE HYDROCHLORIDE
     Indication: Cardiac disorder
     Dosage: 180 MG ST (PUMPING)
     Dates: start: 20220424, end: 20220425
  63. SODIUM LACTATE RINGER^S [Concomitant]
     Indication: Fluid replacement
     Dosage: 500 ML ST
     Route: 041
     Dates: start: 20220424, end: 20220424
  64. SODIUM LACTATE RINGER^S [Concomitant]
     Dosage: 3000 ML ST
     Route: 041
     Dates: start: 20220501, end: 20220501
  65. ARGININE HYDROCHLORIDE [Concomitant]
     Active Substance: ARGININE HYDROCHLORIDE
     Indication: Acid base balance
     Dosage: 20 ML ST (PUMPING)
     Dates: start: 20220423, end: 20220423
  66. ARGININE HYDROCHLORIDE [Concomitant]
     Active Substance: ARGININE HYDROCHLORIDE
     Dosage: 60 ML ST (PUMPING)
     Dates: start: 20220501, end: 20220501
  67. ESMOLOL HYDROCHLORIDE [Concomitant]
     Active Substance: ESMOLOL HYDROCHLORIDE
     Indication: Heart rate
     Dosage: 1 G ST (PUMPING)
     Dates: start: 20220423, end: 20220423
  68. ESMOLOL HYDROCHLORIDE [Concomitant]
     Active Substance: ESMOLOL HYDROCHLORIDE
     Dosage: 1 G ST (PUMPING)
     Dates: start: 20220425, end: 20220425
  69. ESMOLOL HYDROCHLORIDE [Concomitant]
     Active Substance: ESMOLOL HYDROCHLORIDE
     Dosage: 1 G ST (PUMPING)
     Dates: start: 20220428, end: 20220428
  70. ESMOLOL HYDROCHLORIDE [Concomitant]
     Active Substance: ESMOLOL HYDROCHLORIDE
     Dosage: 1 G ST (PUMPING)
     Dates: start: 20220429, end: 20220429
  71. ESMOLOL HYDROCHLORIDE [Concomitant]
     Active Substance: ESMOLOL HYDROCHLORIDE
     Dosage: 1 G ST (PUMPING)
     Dates: start: 20220430, end: 20220430
  72. DEZOCINE [Concomitant]
     Active Substance: DEZOCINE
     Indication: Analgesic therapy
     Dosage: 10 MG ST (PUMPING)
     Dates: start: 20220421, end: 20220421
  73. DEZOCINE [Concomitant]
     Active Substance: DEZOCINE
     Indication: Arrested labour
     Dosage: 20 MG ST (PUMPING)
     Dates: start: 20220429, end: 20220430
  74. PROPOFOL [Concomitant]
     Active Substance: PROPOFOL
     Indication: Relaxation therapy
     Dosage: 500 MG ST (PUMPING)
     Route: 042
     Dates: start: 20220422, end: 20220422
  75. PROPOFOL [Concomitant]
     Active Substance: PROPOFOL
     Dosage: 500 MG ST (PUMPING)
     Route: 042
     Dates: start: 20220423, end: 20220423
  76. PROPOFOL [Concomitant]
     Active Substance: PROPOFOL
     Dosage: 500 MG ST (PUMPING)
     Route: 042
     Dates: start: 20220427, end: 20220427
  77. NOREPINEPHRINE BITARTRATE [Concomitant]
     Active Substance: NOREPINEPHRINE BITARTRATE
     Indication: Blood pressure increased
     Dosage: 10 MG, PRN (PUMPING)
     Dates: start: 20220427, end: 20220503
  78. SUFENTANIL CITRATE [Concomitant]
     Active Substance: SUFENTANIL CITRATE
     Indication: Pain
     Dosage: 200 UG ST (PUMPING)
     Dates: start: 20220423, end: 20220425
  79. SUFENTANIL CITRATE [Concomitant]
     Active Substance: SUFENTANIL CITRATE
     Dosage: 200 UG ST (PUMPING)
     Dates: start: 20220427, end: 20220430
  80. DEXMEDETOMIDINE HYDROCHLORIDE [Concomitant]
     Active Substance: DEXMEDETOMIDINE HYDROCHLORIDE
     Indication: Relaxation therapy
     Dosage: 0.6 MG ST (PUMPING)
     Dates: start: 20220426, end: 20220427
  81. DILTIAZEM HYDROCHLORIDE [Concomitant]
     Active Substance: DILTIAZEM HYDROCHLORIDE
     Indication: Hypotension
     Dosage: 40 MG ST (PUMPING)
     Dates: start: 20220426, end: 20220426
  82. INSULIN HUMAN [Concomitant]
     Active Substance: INSULIN HUMAN
     Indication: Blood glucose decreased
     Dosage: 8 IU ST
     Route: 058
     Dates: start: 20220425, end: 20220425
  83. INSULIN HUMAN [Concomitant]
     Active Substance: INSULIN HUMAN
     Dosage: 50 IU ST (PUMPING)
     Route: 058
     Dates: start: 20220429, end: 20220429
  84. CARBAZOCHROME SODIUM SULFONATE [Concomitant]
     Active Substance: CARBAZOCHROME SODIUM SULFONATE
     Indication: Anticoagulant therapy
     Dosage: 80 MG ST
     Route: 041
     Dates: start: 20220428, end: 20220428
  85. MAGNESIUM SULFATE [Concomitant]
     Active Substance: MAGNESIUM SULFATE
     Indication: Blood potassium decreased
     Dosage: 5 ML ST (PUMPING)
     Dates: start: 20220423, end: 20220423
  86. PROTHROMBIN COMPLEX CONCENTRATE NOS [Concomitant]
     Active Substance: COAGULATION FACTOR IX HUMAN\COAGULATION FACTOR VII HUMAN\COAGULATION FACTOR X HUMAN\PROTHROMBIN
     Indication: Haemostasis
     Dosage: 200 IU ST (SURGERY IN)
     Dates: start: 20220421, end: 20220421
  87. FIBRINOGEN HUMAN [Concomitant]
     Active Substance: FIBRINOGEN HUMAN
     Indication: Haemostasis
     Dosage: 0.5 G ST
     Dates: start: 20220421, end: 20220421
  88. ACETYLCYSTEINE [Concomitant]
     Active Substance: ACETYLCYSTEINE
     Indication: Productive cough
     Dosage: 0.3 G, 3X/DAY
     Route: 055
     Dates: start: 20220429, end: 20220502
  89. AMLODIPINE BESYLATE [Concomitant]
     Active Substance: AMLODIPINE BESYLATE
     Indication: Hypertension
     Dosage: 5 MG, 1X/DAY (QD) (PUMPING)
     Dates: start: 20220426, end: 20220427
  90. SODIUM GLYCEROPHOSPHATE [Concomitant]
     Active Substance: SODIUM GLYCEROPHOSPHATE
     Indication: Prophylaxis
     Dosage: 10 ML, 1X/DAY
     Route: 041
     Dates: start: 20220426, end: 20220428

REACTIONS (2)
  - Septic shock [Not Recovered/Not Resolved]
  - Cardiac failure acute [Not Recovered/Not Resolved]

NARRATIVE: CASE EVENT DATE: 20220501
